FAERS Safety Report 18258637 (Version 2)
Quarter: 2020Q3

REPORT INFORMATION
  Report Type: Spontaneous
  Country: US (occurrence: US)
  Receive Date: 20200911
  Receipt Date: 20200916
  Transmission Date: 20201103
  Serious: Yes (Disabling)
  Sender: FDA-Public Use
  Company Number: US-PFIZER INC-2020281139

PATIENT
  Sex: Female
  Weight: 57.61 kg

DRUGS (1)
  1. PREMARIN [Suspect]
     Active Substance: ESTROGENS, CONJUGATED
     Indication: HORMONE REPLACEMENT THERAPY
     Dosage: UNK, DAILY (0.625 EVERY DAY)
     Route: 048

REACTIONS (4)
  - Coital bleeding [Recovered/Resolved]
  - Intentional product misuse [Unknown]
  - Drug dependence [Not Recovered/Not Resolved]
  - Vaginal haemorrhage [Unknown]
